FAERS Safety Report 8523140-4 (Version None)
Quarter: 2012Q3

REPORT INFORMATION
  Report Type: 
  Country: None (occurrence: None)
  Receive Date: 20120713
  Receipt Date: 20120713
  Transmission Date: 20120928
  Serious: Yes (Hospitalization)
  Sender: FDA-Public Use
  Company Number: None

PATIENT
  Age: 66 Year
  Sex: Male
  Weight: 175.6 kg

DRUGS (2)
  1. BUMETANIDE [Suspect]
     Indication: CARDIAC FAILURE CONGESTIVE
     Dates: start: 20111025, end: 20120421
  2. METOLAZONE [Suspect]
     Dates: start: 20091001, end: 20120421

REACTIONS (3)
  - POLYURIA [None]
  - HYPOTENSION [None]
  - ORTHOSTATIC HYPOTENSION [None]
